FAERS Safety Report 5481534-8 (Version None)
Quarter: 2007Q4

REPORT INFORMATION
  Report Type: 
  Country: None (occurrence: None)
  Receive Date: 20071010
  Receipt Date: 20071001
  Transmission Date: 20080405
  Serious: Yes (Other)
  Sender: FDA-Public Use
  Company Number: CH-AMGEN-US246484

PATIENT
  Age: 35 Year
  Sex: Male

DRUGS (2)
  1. ENBREL [Suspect]
     Indication: PSORIASIS
     Dates: start: 20060101, end: 20060101
  2. ENBREL [Suspect]
     Dates: start: 20070801

REACTIONS (2)
  - BLOOD BILIRUBIN INCREASED [None]
  - HAEMOLYSIS [None]
